FAERS Safety Report 5174199-6 (Version None)
Quarter: 2006Q4

REPORT INFORMATION
  Report Type: 
  Country: None (occurrence: None)
  Receive Date: 20061206
  Receipt Date: 20061116
  Transmission Date: 20070319
  Serious: Yes (Life-Threatening, Hospitalization)
  Sender: FDA-Public Use
  Company Number: 231526

PATIENT
  Age: 64 Year
  Sex: Male

DRUGS (10)
  1. AVASTIN [Suspect]
     Indication: ADENOCARCINOMA PANCREAS
     Dosage: 10 MG/KG, INTRAVENOUS
     Route: 042
     Dates: start: 20060902, end: 20060930
  2. GEMCITABINE [Suspect]
     Indication: ADENOCARCINOMA PANCREAS
     Dosage: SEE IMAGE
     Route: 042
     Dates: start: 20060902, end: 20061007
  3. GEMCITABINE [Suspect]
     Indication: ADENOCARCINOMA PANCREAS
     Dosage: SEE IMAGE
     Route: 042
     Dates: start: 20060916, end: 20061007
  4. CREON 10 (PANCREATIN) [Concomitant]
  5. HYDROCODONE + ACETAMINOPHEN (ACETAMINOPHEN, HYDROCODONE BITARTRATE) [Concomitant]
  6. ALLOPURINOL [Concomitant]
  7. PRAVACHOL [Concomitant]
  8. PROTONIX [Concomitant]
  9. QUINAPRIL [Concomitant]
  10. ZOFRAN [Concomitant]

REACTIONS (22)
  - BLOOD SODIUM DECREASED [None]
  - CHOLANGITIS [None]
  - CHOLECYSTITIS [None]
  - CHOLELITHIASIS [None]
  - FLUID OVERLOAD [None]
  - GALLBLADDER DISORDER [None]
  - GASTRIC DILATATION [None]
  - HAEMATOCRIT DECREASED [None]
  - HAEMOGLOBIN DECREASED [None]
  - HYPOTENSION [None]
  - ILEUS [None]
  - LYMPHOCYTE PERCENTAGE DECREASED [None]
  - MALNUTRITION [None]
  - NEUTROPHIL PERCENTAGE INCREASED [None]
  - PHARYNGITIS [None]
  - PNEUMOBILIA [None]
  - PULMONARY EMBOLISM [None]
  - RED BLOOD CELL COUNT DECREASED [None]
  - RENAL FAILURE ACUTE [None]
  - SEPSIS [None]
  - SINUS TACHYCARDIA [None]
  - STENT OCCLUSION [None]
